FAERS Safety Report 24655857 (Version 5)
Quarter: 2025Q2

REPORT INFORMATION
  Report Type: Spontaneous
  Country: US (occurrence: US)
  Receive Date: 20241124
  Receipt Date: 20250619
  Transmission Date: 20250716
  Serious: Yes (Other)
  Sender: CSL BEHRING
  Company Number: US-BEH-2024185846

PATIENT
  Age: 32 Year
  Sex: Female

DRUGS (59)
  1. HIZENTRA [Suspect]
     Active Substance: HUMAN IMMUNOGLOBULIN G
     Indication: Immunodeficiency common variable
     Dosage: 10GM/50ML EVERY  WEEK
     Route: 058
     Dates: start: 20241029
  2. HIZENTRA [Suspect]
     Active Substance: HUMAN IMMUNOGLOBULIN G
     Dosage: 04 GM/20ML EVERY  WEEK
     Route: 058
     Dates: start: 20241029
  3. HIZENTRA [Suspect]
     Active Substance: HUMAN IMMUNOGLOBULIN G
     Dosage: 15 G, QW(10GM/50ML EVERY  WEEK)
     Route: 058
     Dates: start: 20241029
  4. HIZENTRA [Suspect]
     Active Substance: HUMAN IMMUNOGLOBULIN G
     Dosage: 15 G, QW(10GM/50ML EVERY  WEEK)
     Route: 058
     Dates: start: 20241029
  5. SIMLANDI [Suspect]
     Active Substance: ADALIMUMAB-RYVK
     Route: 065
  6. ALBUTEROL [Concomitant]
     Active Substance: ALBUTEROL
  7. AMITRIPTYLINE HYDROCHLORIDE [Concomitant]
     Active Substance: AMITRIPTYLINE HYDROCHLORIDE
  8. BENZONATATE [Concomitant]
     Active Substance: BENZONATATE
  9. BOOSTRIX-IPV [Concomitant]
     Active Substance: DIPHTHERIA AND TETANUS TOXOIDS AND ACELLULAR PERTUSSIS ADSORBED AND INACTIVATED POLIOVIRUS VACCINE
     Route: 065
  10. BUDESONIDE [Concomitant]
     Active Substance: BUDESONIDE
  11. CARBAMAZEPINE [Concomitant]
     Active Substance: CARBAMAZEPINE
  12. CELECOXIB [Concomitant]
     Active Substance: CELECOXIB
  13. CETIRIZINE [Concomitant]
     Active Substance: CETIRIZINE HYDROCHLORIDE
  14. CLOBETASOL [Concomitant]
     Active Substance: CLOBETASOL
  15. CLOBETASOL [Concomitant]
     Active Substance: CLOBETASOL
  16. Clonidine bnm [Concomitant]
  17. Cuvitru 1 [Concomitant]
  18. Cuvitru 1 [Concomitant]
  19. Cuvitru 1 [Concomitant]
  20. CYCLOBENZAPRINE [Concomitant]
     Active Substance: CYCLOBENZAPRINE
  21. EPINEPHRINE BITARTRATE [Concomitant]
     Active Substance: EPINEPHRINE BITARTRATE
  22. FAMOTIDINE [Concomitant]
     Active Substance: FAMOTIDINE
  23. FLUCONAZOLE [Concomitant]
     Active Substance: FLUCONAZOLE
  24. FLUCONAZOLE [Concomitant]
     Active Substance: FLUCONAZOLE
  25. FLUCONAZOLE [Concomitant]
     Active Substance: FLUCONAZOLE
  26. FOLIC ACID [Concomitant]
     Active Substance: FOLIC ACID
  27. GABAPENTIN [Concomitant]
     Active Substance: GABAPENTIN
  28. HUMIRA [Concomitant]
     Active Substance: ADALIMUMAB
  29. HYDROCHLOROTHIAZIDE [Concomitant]
     Active Substance: HYDROCHLOROTHIAZIDE
  30. HYDROXOCOBALAMIN HYDROCHLORIDE [Concomitant]
     Active Substance: HYDROXOCOBALAMIN HYDROCHLORIDE
  31. HYDROXYZINE [Concomitant]
     Active Substance: HYDROXYZINE HYDROCHLORIDE
  32. HYOSCYAMINE [Concomitant]
     Active Substance: HYOSCYAMINE
  33. IPRATROPIUM [Concomitant]
     Active Substance: IPRATROPIUM
  34. KENALOG [Concomitant]
     Active Substance: TRIAMCINOLONE ACETONIDE
  35. Lido [Concomitant]
  36. PRILOCAINE [Concomitant]
     Active Substance: PRILOCAINE
  37. Medroxyproges lens [Concomitant]
  38. METHOTREXATE [Concomitant]
     Active Substance: METHOTREXATE
  39. Montelukast 1 A Pharma [Concomitant]
  40. Nortriptylin glenmark [Concomitant]
  41. NYSTATIN [Concomitant]
     Active Substance: NYSTATIN
  42. Triam a [Concomitant]
  43. OMEPRAZOLE\SODIUM BICARBONATE [Concomitant]
     Active Substance: OMEPRAZOLE\SODIUM BICARBONATE
  44. OMEPRAZOLE\SODIUM BICARBONATE [Concomitant]
     Active Substance: OMEPRAZOLE\SODIUM BICARBONATE
  45. ONDANSETRON HYDROCHLORIDE [Concomitant]
     Active Substance: ONDANSETRON HYDROCHLORIDE
  46. PREDNISONE ACETATE [Concomitant]
     Active Substance: PREDNISONE ACETATE
  47. PREDNISONE ACETATE [Concomitant]
     Active Substance: PREDNISONE ACETATE
  48. PREDNISONE ACETATE [Concomitant]
     Active Substance: PREDNISONE ACETATE
  49. PREGABALIN [Concomitant]
     Active Substance: PREGABALIN
  50. PREGABALIN [Concomitant]
     Active Substance: PREGABALIN
  51. PREGABALIN [Concomitant]
     Active Substance: PREGABALIN
  52. QVAR REDIHALER [Concomitant]
     Active Substance: BECLOMETHASONE DIPROPIONATE
  53. SCOPOLAMINE [Concomitant]
     Active Substance: SCOPOLAMINE
  54. Sulfasalazin en [Concomitant]
  55. TOPAMAX [Concomitant]
     Active Substance: TOPIRAMATE
  56. TOPIRAMATE [Concomitant]
     Active Substance: TOPIRAMATE
  57. Triamcin. aceton.acet., micon.nit.,neom.sulf. [Concomitant]
  58. WIXELA INHUB [Concomitant]
     Active Substance: FLUTICASONE PROPIONATE\SALMETEROL XINAFOATE
  59. XOLAIR [Concomitant]
     Active Substance: OMALIZUMAB

REACTIONS (12)
  - Drug ineffective [Unknown]
  - Condition aggravated [Unknown]
  - Skin lesion [Unknown]
  - Condition aggravated [Unknown]
  - Skin lesion [Unknown]
  - Condition aggravated [Not Recovered/Not Resolved]
  - Skin lesion [Not Recovered/Not Resolved]
  - Psoriasis [Not Recovered/Not Resolved]
  - Skin discolouration [Not Recovered/Not Resolved]
  - Pain [Not Recovered/Not Resolved]
  - Pruritus [Not Recovered/Not Resolved]
  - Condition aggravated [Unknown]

NARRATIVE: CASE EVENT DATE: 20250310
